FAERS Safety Report 6997011-9 (Version None)
Quarter: 2010Q3

REPORT INFORMATION
  Report Type: 
  Country: None (occurrence: None)
  Receive Date: 20100918
  Receipt Date: 20090821
  Transmission Date: 20110219
  Serious: No
  Sender: FDA-Public Use
  Company Number: US-WYE-H10697309

PATIENT
  Sex: Female
  Weight: 102.15 kg

DRUGS (4)
  1. EFFEXOR XR [Suspect]
     Indication: DEPRESSION
     Route: 048
     Dates: start: 19990101
  2. ALBUTEROL [Concomitant]
  3. KLONOPIN [Concomitant]
  4. OXYGEN [Concomitant]

REACTIONS (2)
  - DRUG EFFECT DECREASED [None]
  - PERSONALITY CHANGE [None]
